FAERS Safety Report 5307819-3 (Version None)
Quarter: 2007Q2

REPORT INFORMATION
  Report Type: 
  Country: None (occurrence: None)
  Receive Date: 20070418
  Receipt Date: 20070409
  Transmission Date: 20071010
  Serious: Yes (Other)
  Sender: FDA-Public Use
  Company Number: 2007314670

PATIENT
  Sex: Male
  Weight: 82.5547 kg

DRUGS (4)
  1. BENADRYL [Suspect]
     Indication: HYPERSENSITIVITY
     Dosage: ONE OR 2 A DAY TWICE A DAY, ORAL
     Route: 048
     Dates: end: 20070409
  2. GLUCOPHAGE [Concomitant]
  3. ACTOS [Concomitant]
  4. GLUCOTROL XL [Concomitant]

REACTIONS (1)
  - URTICARIA [None]
